FAERS Safety Report 8901552 (Version 1)
Quarter: 2012Q4

REPORT INFORMATION
  Report Type: Report from Study
  Country: JP (occurrence: JP)
  Receive Date: 20121108
  Receipt Date: 20121108
  Transmission Date: 20130627
  Serious: Yes (Other)
  Sender: FDA-Public Use
  Company Number: JP-VERTEX PHARMACEUTICAL INC.-2012-024169

PATIENT
  Age: 60 Year
  Sex: Male

DRUGS (12)
  1. VX-950 [Suspect]
     Indication: CHRONIC HEPATITIS C
     Dosage: 1500 mg, qd
     Route: 048
     Dates: start: 20120904
  2. RIBAVIRIN [Suspect]
     Indication: CHRONIC HEPATITIS C
     Dosage: 800 mg, qd
     Route: 048
     Dates: start: 20120904, end: 20120918
  3. RIBAVIRIN [Suspect]
     Dosage: 600 mg, qd
     Route: 048
     Dates: start: 20120919, end: 20120929
  4. RIBAVIRIN [Suspect]
     Dosage: 400 mg, qd
     Route: 048
     Dates: start: 20120930
  5. PEGINTERFERON ALFA-2B [Suspect]
     Indication: CHRONIC HEPATITIS C
     Dosage: 1.5 ?g/kg, qw
     Route: 058
     Dates: start: 20120904, end: 20120924
  6. PEGINTERFERON ALFA-2B [Suspect]
     Dosage: 1.3 ?g/kg, qw
     Route: 058
     Dates: start: 20120925, end: 20120925
  7. PEGINTERFERON ALFA-2B [Suspect]
     Dosage: 0.6 ?g/kg, qw
     Route: 058
     Dates: start: 20121009, end: 20121009
  8. PEGINTERFERON ALFA-2B [Suspect]
     Dosage: 1.0 ?g/kg, qw
     Route: 058
     Dates: start: 20121016, end: 20121016
  9. PEGINTERFERON ALFA-2B [Suspect]
     Dosage: 1.2 ?g/kg, UNK
     Route: 058
     Dates: start: 20121023
  10. CALONAL [Concomitant]
     Dosage: 400 mg, prn
     Route: 048
     Dates: start: 20120904
  11. RHYTHMY [Concomitant]
     Dosage: 1 mg, prn
     Route: 048
     Dates: start: 20120904
  12. OLMETEC [Concomitant]
     Dosage: 10 mg, qd
     Route: 048
     Dates: start: 20120906

REACTIONS (2)
  - Renal disorder [Unknown]
  - Erythema multiforme [Recovered/Resolved]
